FAERS Safety Report 6396915-8 (Version None)
Quarter: 2009Q4

REPORT INFORMATION
  Report Type: 
  Country: None (occurrence: None)
  Receive Date: 20091012
  Receipt Date: 20090909
  Transmission Date: 20100525
  Serious: No
  Sender: FDA-Public Use
  Company Number: US-BAYER-200920792NA

PATIENT
  Age: 20 Year
  Sex: Female
  Weight: 53 kg

DRUGS (3)
  1. MIRENA [Suspect]
     Indication: CONTRACEPTION
     Dosage: CONTINUOUS
     Route: 015
     Dates: start: 20090503
  2. ALBUTEROL [Concomitant]
  3. LOESTRIN 24 FE [Concomitant]
     Dates: end: 20070701

REACTIONS (11)
  - ACNE [None]
  - DRY SKIN [None]
  - HAEMORRHAGE [None]
  - HERPES VIRUS INFECTION [None]
  - HYPERSENSITIVITY [None]
  - INFECTION [None]
  - LETHARGY [None]
  - MIGRAINE [None]
  - PYREXIA [None]
  - VAGINAL DISCHARGE [None]
  - VAGINAL LESION [None]
